FAERS Safety Report 9115460 (Version 1)
Quarter: 2013Q1

REPORT INFORMATION
  Report Type: Spontaneous
  Country: US (occurrence: US)
  Receive Date: 20130225
  Receipt Date: 20130225
  Transmission Date: 20140127
  Serious: No
  Sender: FDA-Public Use
  Company Number: US-ENDO PHARMACEUTICALS INC.-FORT20120124

PATIENT
  Age: 53 None
  Sex: Male
  Weight: 88.53 kg

DRUGS (5)
  1. FORTESTA [Suspect]
     Indication: HYPOGONADISM
     Route: 061
     Dates: start: 20120301, end: 20120417
  2. FORTESTA [Suspect]
     Route: 061
     Dates: start: 20120131, end: 20120301
  3. ALLOPURINOL TABLETS 100MG [Concomitant]
     Indication: HYPERURICAEMIA
     Route: 048
  4. LOSARTAN/HYDROCHLOROTHIAZIDE [Concomitant]
     Indication: ESSENTIAL HYPERTENSION
     Dosage: 100/12.5 MG
     Route: 048
  5. ZOCOR [Concomitant]
     Indication: HYPERCHOLESTEROLAEMIA
     Route: 048

REACTIONS (6)
  - Tachycardia [Recovered/Resolved]
  - Tremor [Recovered/Resolved]
  - Insomnia [Recovered/Resolved]
  - Agitation [Recovered/Resolved]
  - Mood swings [Recovered/Resolved]
  - Malaise [Unknown]
